FAERS Safety Report 18029433 (Version 1)
Quarter: 2020Q3

REPORT INFORMATION
  Report Type: Spontaneous
  Country: KR (occurrence: KR)
  Receive Date: 20200716
  Receipt Date: 20200716
  Transmission Date: 20201103
  Serious: Yes (Other)
  Sender: FDA-Public Use
  Company Number: KR-BAUSCH-BL-2020-019625

PATIENT
  Age: 59 Year
  Sex: Male

DRUGS (1)
  1. JUBLIA [Suspect]
     Active Substance: EFINACONAZOLE
     Indication: TINEA PEDIS
     Dosage: FOR ABOUT 18 MONTHS 4ML?SOLUTION EXCEPT SYRUP
     Route: 061
     Dates: start: 201812

REACTIONS (2)
  - Soft tissue inflammation [Unknown]
  - Epidermal necrosis [Unknown]

NARRATIVE: CASE EVENT DATE: 202005
